FAERS Safety Report 14544150 (Version 7)
Quarter: 2021Q4

REPORT INFORMATION
  Report Type: Spontaneous
  Country: IT (occurrence: IT)
  Receive Date: 20180216
  Receipt Date: 20211018
  Transmission Date: 20220303
  Serious: Yes (Other)
  Sender: FDA-Public Use
  Company Number: PHBS2004IT01950

PATIENT
  Age: 36 Year
  Sex: Female

DRUGS (5)
  1. DICLOFENAC [Suspect]
     Active Substance: DICLOFENAC
     Indication: Neuritis
     Dosage: 75 MG, QD, FROM THE 2ND TO THE 3RD MONTH DURING MOTHER PREGNANCY : 8 WEEKS
     Route: 065
  2. NIMESULIDE [Suspect]
     Active Substance: NIMESULIDE
     Indication: Neuritis
     Dosage: 200 MG, QD.,100-200 MG, DAILY (FROM 3 MONTHS GW TO 1 MONTH
     Route: 065
  3. NIMESULIDE [Suspect]
     Active Substance: NIMESULIDE
     Dosage: 100 MG, QD,FROM 4 MONTHS GW TO DELIV
     Route: 065
  4. ACETAMINOPHEN [Suspect]
     Active Substance: ACETAMINOPHEN
     Indication: Neuritis
     Dosage: 9 G, QD,8-9 G PER DAY,(2ND TO 3RD MONTH OF GESTATION)
     Route: 065
  5. ACETAMINOPHEN [Suspect]
     Active Substance: ACETAMINOPHEN
     Dosage: 2 G, QD,1-2 G PER DAY (4TH MONTH TO DELIVERY)
     Route: 065

REACTIONS (6)
  - Oligohydramnios [Unknown]
  - Overdose [Unknown]
  - Contraindication to medical treatment [Unknown]
  - Premature delivery [Unknown]
  - Product use issue [Unknown]
  - Maternal exposure during pregnancy [Unknown]
